FAERS Safety Report 4682430-6 (Version None)
Quarter: 2005Q2

REPORT INFORMATION
  Report Type: 
  Country: None (occurrence: None)
  Receive Date: 20050602
  Receipt Date: 20050408
  Transmission Date: 20051028
  Serious: No
  Sender: FDA-Public Use
  Company Number: USA050495261

PATIENT
  Sex: Female

DRUGS (5)
  1. CYMBALTA [Suspect]
     Indication: DEPRESSION
     Dosage: 60 MG
     Dates: start: 20050330
  2. CALCIUM GLUCONATE [Concomitant]
  3. AVANDAMET [Concomitant]
  4. IMIPRAMINE [Concomitant]
  5. SEROQUEL [Concomitant]

REACTIONS (2)
  - FEELING ABNORMAL [None]
  - ILL-DEFINED DISORDER [None]
